FAERS Safety Report 5035739-0 (Version None)
Quarter: 2006Q2

REPORT INFORMATION
  Report Type: 
  Country: None (occurrence: None)
  Receive Date: 20060627
  Receipt Date: 20060620
  Transmission Date: 20061013
  Serious: Yes (Hospitalization, Other)
  Sender: FDA-Public Use
  Company Number: US-BRISTOL-MYERS SQUIBB COMPANY-13417951

PATIENT
  Age: 58 Week
  Sex: Female
  Weight: 62 kg

DRUGS (7)
  1. ERBITUX [Suspect]
     Indication: NON-SMALL CELL LUNG CANCER
     Dosage: 7TH DOSE: 17-APR-06. GIVEN AT 400 MG/M2 DAY 1 THEN 250 MG/M2 WEEKLY (TOTAL OF 7 WEEKS TREATMENT).
     Route: 042
     Dates: start: 20060101, end: 20060101
  2. CARBOPLATIN [Suspect]
     Indication: NON-SMALL CELL LUNG CANCER
     Dosage: GIVEN AT AUC+6 ON DAYS 1 X 4 CYCLES. LAST GIVEN 10-APR-06 (586 MG).
     Route: 042
     Dates: start: 20060101, end: 20060101
  3. ALPRAZOLAM [Suspect]
  4. ALIMTA [Suspect]
     Indication: NON-SMALL CELL LUNG CANCER
     Dosage: LAST GIVEN 10-APR-06 (660 MG). GIVEN AT 500MG/M2 DAY 1 X 4 CYCLES THEN AGAIN DAY 1 X 4 CYCLES.
     Route: 042
     Dates: start: 20060101, end: 20060101
  5. RADIATION THERAPY [Suspect]
     Indication: NON-SMALL CELL LUNG CANCER
     Dosage: GIVEN AT 70 GY DAY 1 FOR 7 WEEKS. DATE OF LAST TREATMENT 25-APR-06. TOTAL NUMBER FRACTIONS: 26.
     Dates: start: 20060101, end: 20060101
  6. OXYCONTIN [Suspect]
  7. MORPHINE [Suspect]

REACTIONS (15)
  - BLOOD MAGNESIUM DECREASED [None]
  - BLOOD POTASSIUM DECREASED [None]
  - CONFUSIONAL STATE [None]
  - CONVULSION [None]
  - FEBRILE NEUTROPENIA [None]
  - GRAND MAL CONVULSION [None]
  - HAEMOGLOBIN DECREASED [None]
  - INFECTION [None]
  - LETHARGY [None]
  - LYMPHOPENIA [None]
  - MENTAL STATUS CHANGES [None]
  - PLATELET COUNT DECREASED [None]
  - PROTEINURIA [None]
  - URINARY TRACT INFECTION [None]
  - WHITE BLOOD CELL COUNT DECREASED [None]
